FAERS Safety Report 7208315-9 (Version None)
Quarter: 2011Q1

REPORT INFORMATION
  Report Type: 
  Country: None (occurrence: None)
  Receive Date: 20110104
  Receipt Date: 20101222
  Transmission Date: 20110831
  Serious: Yes (Hospitalization)
  Sender: FDA-Public Use
  Company Number: RU-JNJFOC-20101207549

PATIENT
  Sex: Female

DRUGS (1)
  1. NIZORAL [Suspect]
     Indication: ANTIFUNGAL PROPHYLAXIS
     Route: 048

REACTIONS (2)
  - PRODUCT QUALITY ISSUE [None]
  - RESUSCITATION [None]
